FAERS Safety Report 14590440 (Version 1)
Quarter: 2018Q1

REPORT INFORMATION
  Report Type: Spontaneous
  Country: TR (occurrence: TR)
  Receive Date: 20180302
  Receipt Date: 20180302
  Transmission Date: 20180509
  Serious: Yes (Hospitalization)
  Sender: FDA-Public Use
  Company Number: TR-ABBVIE-18S-161-2268104-00

PATIENT
  Age: 12 Year
  Sex: Female

DRUGS (1)
  1. SEVORANE [Suspect]
     Active Substance: SEVOFLURANE
     Indication: PRODUCT USED FOR UNKNOWN INDICATION
     Route: 055
     Dates: start: 201802, end: 201802

REACTIONS (2)
  - Tachycardia [Recovered/Resolved]
  - Anaesthetic complication [Recovered/Resolved]

NARRATIVE: CASE EVENT DATE: 201802
